FAERS Safety Report 6756109-0 (Version None)
Quarter: 2010Q2

REPORT INFORMATION
  Report Type: 
  Country: None (occurrence: None)
  Receive Date: 20100524
  Receipt Date: 20100122
  Transmission Date: 20101027
  Serious: No
  Sender: FDA-Public Use
  Company Number: 005412

PATIENT
  Sex: Male
  Weight: 87.2 kg

DRUGS (10)
  1. CIMZIA [Suspect]
     Indication: CROHN'S DISEASE
     Dosage: (SUBCUTANEOUS)
     Route: 058
     Dates: start: 20100121
  2. GLUCOPHAGE [Concomitant]
  3. GLIPIZIDE [Concomitant]
  4. JANUVIA [Concomitant]
  5. HUMULIN /00646002/ [Concomitant]
  6. NIASPAN [Concomitant]
  7. PROTONIX [Concomitant]
  8. ZANTAC /00550802/ [Concomitant]
  9. HUMIRA [Concomitant]
  10. FLOMAX [Concomitant]

REACTIONS (1)
  - INJECTION SITE PAIN [None]
